FAERS Safety Report 9347759 (Version 1)
Quarter: 2013Q2

REPORT INFORMATION
  Report Type: Spontaneous
  Country: US (occurrence: US)
  Receive Date: 20130614
  Receipt Date: 20130614
  Transmission Date: 20140414
  Serious: No
  Sender: FDA-Public Use
  Company Number: US-PFIZER INC-2013175545

PATIENT
  Age: 75 Year
  Sex: Female
  Weight: 65.76 kg

DRUGS (4)
  1. PREMARIN [Suspect]
     Indication: VULVOVAGINAL DRYNESS
     Dosage: 1.5 G, TWO TO THREE TIMES A WEEK
     Route: 067
  2. PREMARIN [Suspect]
     Dosage: 1.5 G, MONTHLY OR TWO TIMES IN A MONTH
     Route: 067
  3. PREMARIN [Suspect]
     Dosage: UNK, 1X/DAY
     Route: 048
  4. SIMVASTATIN [Concomitant]
     Indication: BLOOD CHOLESTEROL INCREASED
     Dosage: UNK

REACTIONS (3)
  - Rash [Unknown]
  - Sensitisation [Unknown]
  - Breast tenderness [Unknown]
